FAERS Safety Report 6523091-0 (Version None)
Quarter: 2009Q4

REPORT INFORMATION
  Report Type: 
  Country: None (occurrence: None)
  Receive Date: 20091222
  Receipt Date: 20091209
  Transmission Date: 20100525
  Serious: Yes (Hospitalization, Other)
  Sender: FDA-Public Use
  Company Number: 0912-352

PATIENT
  Age: 74 Year
  Sex: Male
  Weight: 73.0291 kg

DRUGS (4)
  1. ARCALYST [Suspect]
     Indication: FAMILIAL COLD AUTOINFLAMMATORY SYNDROME
     Dosage: 160 MG, QWK, SUBCUTANEOUS; JUNE OR JULY 2009
     Route: 058
     Dates: start: 20090601, end: 20091205
  2. TERAZOSIN HCL [Concomitant]
  3. FINASTERIDE [Concomitant]
  4. ISOSORBIDE [Concomitant]

REACTIONS (4)
  - HAEMOPTYSIS [None]
  - INFECTION [None]
  - LUNG NEOPLASM MALIGNANT [None]
  - ROAD TRAFFIC ACCIDENT [None]
